FAERS Safety Report 4759460-9 (Version None)
Quarter: 2005Q3

REPORT INFORMATION
  Report Type: 
  Country: None (occurrence: None)
  Receive Date: 20050831
  Receipt Date: 20050824
  Transmission Date: 20060218
  Serious: Yes (Other)
  Sender: FDA-Public Use
  Company Number: 200513434BCC

PATIENT
  Age: 76 Year
  Sex: Male
  Weight: 72.5755 kg

DRUGS (3)
  1. ALEVE (CAPLET) [Suspect]
     Indication: ARTHRALGIA
     Dosage: 440 MG, TOTAL DAILY, ORAL; 220 MG, QD, ORAL
     Route: 048
     Dates: start: 20050701, end: 20050823
  2. ALEVE (CAPLET) [Suspect]
     Indication: ARTHRALGIA
     Dosage: 440 MG, TOTAL DAILY, ORAL; 220 MG, QD, ORAL
     Route: 048
     Dates: start: 20050824
  3. . [Concomitant]

REACTIONS (1)
  - BLOOD PRESSURE INCREASED [None]
